FAERS Safety Report 4308032-9 (Version None)
Quarter: 2004Q1

REPORT INFORMATION
  Report Type: 
  Country: None (occurrence: None)
  Receive Date: 20040301
  Receipt Date: 20030331
  Transmission Date: 20041129
  Serious: No
  Sender: FDA-Public Use
  Company Number: US-BRISTOL-MYERS SQUIBB COMPANY-12225413

PATIENT
  Sex: Female

DRUGS (2)
  1. GLUCOPHAGE [Suspect]
     Dates: start: 20021101
  2. PREMARIN [Concomitant]

REACTIONS (8)
  - DIZZINESS [None]
  - GENITAL DISORDER FEMALE [None]
  - HYPERHIDROSIS [None]
  - NAUSEA [None]
  - SLEEP DISORDER [None]
  - VAGINAL HAEMORRHAGE [None]
  - VAGINAL PAIN [None]
  - VULVOVAGINAL DRYNESS [None]
